FAERS Safety Report 9257239 (Version 3)
Quarter: 2013Q2

REPORT INFORMATION
  Report Type: Report from Study
  Country: US (occurrence: US)
  Receive Date: 20130426
  Receipt Date: 20130510
  Transmission Date: 20140414
  Serious: Yes (Death, Other)
  Sender: FDA-Public Use
  Company Number: PHEH2013US008542

PATIENT
  Sex: Male

DRUGS (1)
  1. AFINITOR [Suspect]
     Indication: RENAL NEOPLASM
     Dosage: 10 MG, QD
     Route: 048
     Dates: start: 201302

REACTIONS (4)
  - Renal neoplasm [Fatal]
  - Malignant neoplasm progression [Fatal]
  - Neoplasm [Unknown]
  - Drug ineffective [Unknown]
